FAERS Safety Report 4562375-2 (Version None)
Quarter: 2005Q1

REPORT INFORMATION
  Report Type: 
  Country: None (occurrence: None)
  Receive Date: 20050127
  Receipt Date: 20041224
  Transmission Date: 20050727
  Serious: Yes (Death)
  Sender: FDA-Public Use
  Company Number: 200413992JP

PATIENT
  Age: 97 Year
  Sex: Female
  Weight: 43.2 kg

DRUGS (19)
  1. KETEK [Suspect]
     Indication: BRONCHOPNEUMONIA
     Route: 048
     Dates: start: 20041220, end: 20041220
  2. GRINOLART [Concomitant]
     Route: 048
     Dates: start: 20041218, end: 20041220
  3. MAGNESIUM OXIDE [Concomitant]
     Route: 048
     Dates: start: 20041220, end: 20041220
  4. PANTOSIN [Concomitant]
     Route: 048
     Dates: start: 20041220, end: 20041220
  5. MEBRON [Concomitant]
     Route: 048
     Dates: start: 20041220, end: 20041220
  6. FOSMICIN [Concomitant]
     Indication: BRONCHOPNEUMONIA
     Route: 041
     Dates: start: 20041214, end: 20041219
  7. ACTIT [Concomitant]
     Indication: ASTHMA
     Route: 041
     Dates: start: 20041214, end: 20041220
  8. B-KAPP INJECTION [Concomitant]
     Indication: ASTHMA
     Dosage: DOSE: 1A
     Route: 041
     Dates: start: 20041214, end: 20041220
  9. VITAMIN C [Concomitant]
     Indication: ASTHMA
     Route: 041
     Dates: start: 20041215, end: 20041220
  10. PHYSIOLOGICAL SALINE [Concomitant]
     Indication: ASTHMA
     Route: 041
     Dates: start: 20041220, end: 20041220
  11. SERENACE [Concomitant]
     Indication: DELIRIUM
     Dosage: DOSE: 1A
     Route: 041
     Dates: start: 20041218, end: 20041218
  12. CRAVIT [Concomitant]
     Indication: BRONCHOPNEUMONIA
     Route: 048
     Dates: start: 20041214, end: 20041218
  13. SELBEX [Concomitant]
     Indication: GASTRITIS
     Route: 048
     Dates: start: 20041214, end: 20041218
  14. VOLTAREN SUPPOSITORIEN [Concomitant]
     Indication: HYPERPYREXIA
     Route: 054
     Dates: start: 20041217, end: 20041219
  15. QVAR 40 [Concomitant]
     Route: 055
     Dates: start: 20041215, end: 20041220
  16. GRINOLART [Concomitant]
     Route: 048
     Dates: start: 20041218, end: 20041220
  17. MAGNESIUM OXIDE [Concomitant]
     Route: 048
     Dates: start: 20041220, end: 20041220
  18. PANTOSIN [Concomitant]
     Route: 048
     Dates: start: 20041220, end: 20041220
  19. MEBRON [Concomitant]
     Route: 048
     Dates: start: 20041220, end: 20041220

REACTIONS (7)
  - FALL [None]
  - INJURY ASPHYXIATION [None]
  - MYDRIASIS [None]
  - NAUSEA [None]
  - RESPIRATORY ARREST [None]
  - SUDDEN DEATH [None]
  - VOMITING [None]
